FAERS Safety Report 18585275 (Version 1)
Quarter: 2020Q4

REPORT INFORMATION
  Report Type: Report from Study
  Country: CN (occurrence: CN)
  Receive Date: 20201207
  Receipt Date: 20201207
  Transmission Date: 20210114
  Serious: Yes (Death, Other)
  Sender: FDA-Public Use
  Company Number: CN-TEVA-2020-CN-1854206

PATIENT
  Age: 63 Year
  Sex: Male

DRUGS (3)
  1. RITUXIMAB. [Suspect]
     Active Substance: RITUXIMAB
     Indication: DIFFUSE LARGE B-CELL LYMPHOMA
     Dosage: TOTAL OF 6 CYCLES ON DAY 1 OF EACH CYCLE (375 MG/M2,1 IN 21 D)
     Route: 041
     Dates: start: 20200730
  2. BENDAMUSTINE [Suspect]
     Active Substance: BENDAMUSTINE
     Indication: DIFFUSE LARGE B-CELL LYMPHOMA
     Dosage: A TOTAL OF 6 CYCLES ON DAYS 2 AND 3 OF CYCLE 1 AND DAYS 1 AND 2 OF CYCLES 2-6
     Route: 042
     Dates: start: 20200731
  3. ENTECAVIR. [Concomitant]
     Active Substance: ENTECAVIR
     Dates: start: 20200731

REACTIONS (3)
  - Septic shock [Fatal]
  - Pneumonia [Unknown]
  - Platelet count decreased [Unknown]
